FAERS Safety Report 5495265-1 (Version None)
Quarter: 2007Q4

REPORT INFORMATION
  Report Type: 
  Country: None (occurrence: None)
  Receive Date: 20071024
  Receipt Date: 20071012
  Transmission Date: 20080405
  Serious: Yes (Hospitalization, Other)
  Sender: FDA-Public Use
  Company Number: JP-PFIZER INC-2007076750

PATIENT
  Sex: Female
  Weight: 32 kg

DRUGS (12)
  1. VFEND [Suspect]
     Indication: BRONCHOPULMONARY ASPERGILLOSIS
     Dosage: DAILY DOSE:100MG
     Route: 048
     Dates: start: 20070323, end: 20070531
  2. VFEND [Suspect]
     Dosage: DAILY DOSE:350MG
     Route: 048
     Dates: start: 20070601, end: 20070907
  3. LAFUTIDINE [Concomitant]
     Route: 048
     Dates: start: 20070327, end: 20070927
  4. LAC B [Concomitant]
     Route: 048
  5. THEOPHYLLINE [Concomitant]
     Route: 048
  6. MUCOSOLVAN [Concomitant]
     Route: 048
  7. ADONA [Concomitant]
     Route: 048
  8. LOSARTAN POTASSIUM [Concomitant]
     Route: 048
     Dates: start: 20060904, end: 20070822
  9. SELBEX [Concomitant]
     Route: 048
  10. KLARICID [Concomitant]
     Route: 048
  11. LEVOFLOXACIN [Concomitant]
     Route: 048
     Dates: start: 20070808, end: 20070907
  12. MICAFUNGIN [Concomitant]
     Route: 042

REACTIONS (1)
  - INAPPROPRIATE ANTIDIURETIC HORMONE SECRETION [None]
